FAERS Safety Report 10222974 (Version 1)
Quarter: 2014Q2

REPORT INFORMATION
  Report Type: Spontaneous
  Country: US (occurrence: US)
  Receive Date: 20140607
  Receipt Date: 20140607
  Transmission Date: 20141212
  Serious: Yes (Other)
  Sender: FDA-Public Use
  Company Number: CHPA2014US007665

PATIENT
  Sex: 0

DRUGS (1)
  1. EXCEDRIN UNKNOWN [Suspect]
     Indication: MIGRAINE
     Dosage: UNK,UNK
     Route: 048

REACTIONS (4)
  - Drug dependence [Unknown]
  - Blood viscosity decreased [Unknown]
  - Migraine [Unknown]
  - Gastric perforation [Unknown]
